FAERS Safety Report 26161077 (Version 2)
Quarter: 2025Q4

REPORT INFORMATION
  Report Type: Report from Study
  Country: US (occurrence: US)
  Receive Date: 20251216
  Receipt Date: 20251221
  Transmission Date: 20260117
  Serious: Yes (Disabling)
  Sender: ABBVIE
  Company Number: US-ABBVIE-6590365

PATIENT
  Age: 78 Year
  Sex: Male
  Weight: 99.79 kg

DRUGS (3)
  1. SKYRIZI [Suspect]
     Active Substance: RISANKIZUMAB-RZAA
     Indication: Crohn^s disease
     Dosage: 360MG/2.4ML
     Route: 058
     Dates: start: 20240324
  2. AZELASTINE HYDROCHLORIDE [Concomitant]
     Active Substance: AZELASTINE HYDROCHLORIDE
     Indication: Multiple allergies
     Route: 045
  3. SKYRIZI [Suspect]
     Active Substance: RISANKIZUMAB-RZAA
     Indication: Crohn^s disease
     Route: 042
     Dates: start: 20231219, end: 2024

REACTIONS (2)
  - Deafness [Recovering/Resolving]
  - Ear pain [Recovered/Resolved]

NARRATIVE: CASE EVENT DATE: 20250201
